FAERS Safety Report 19795710 (Version 1)
Quarter: 2021Q3

REPORT INFORMATION
  Report Type: Spontaneous
  Country: US (occurrence: US)
  Receive Date: 20210904
  Receipt Date: 20210904
  Transmission Date: 20211014
  Serious: No
  Sender: FDA-Public Use
  Company Number: None

PATIENT
  Age: 68 Year
  Sex: Female
  Weight: 72 kg

DRUGS (17)
  1. LOVASTATIN. [Concomitant]
     Active Substance: LOVASTATIN
  2. CALCIUM [Concomitant]
     Active Substance: CALCIUM
  3. LANSOPRAZOLE 15MG DELAYED RELEASE [Suspect]
     Active Substance: LANSOPRAZOLE
     Indication: GASTROOESOPHAGEAL REFLUX DISEASE
     Dosage: ?          QUANTITY:1 CAPSULE(S);?
     Route: 048
  4. COD LIVER OIL [Concomitant]
     Active Substance: COD LIVER OIL
  5. CIMETIDINE [Concomitant]
     Active Substance: CIMETIDINE
  6. ALOE VERA [Concomitant]
     Active Substance: ALOE VERA LEAF
  7. LUTEIN [Concomitant]
     Active Substance: LUTEIN
  8. BIOTIN [Concomitant]
     Active Substance: BIOTIN
  9. RED MARINE CALCIUM [Concomitant]
  10. MULTI?VITAMIN [Concomitant]
     Active Substance: .ALPHA.-TOCOPHEROL ACETATE, DL-\ASCORBIC ACID\CYANOCOBALAMIN\FLUORIDE ION\FOLIC ACID\NIACIN\PYRIDOXINE\RIBOFLAVIN\THIAMINE\VITAMIN A\VITAMIN D
  11. PREVAGEN (APOAEQUORIN) [Concomitant]
     Active Substance: DIETARY SUPPLEMENT
  12. IBUPROFEN. [Concomitant]
     Active Substance: IBUPROFEN
  13. ZEAXANTHIN [Concomitant]
     Active Substance: ZEAXANTHIN
  14. LATANOPROST OPHTALMIC SOLUTION [Concomitant]
  15. CBD OIL [Concomitant]
     Active Substance: CANNABIDIOL\HERBALS
  16. TIZANIDINE. [Concomitant]
     Active Substance: TIZANIDINE
  17. MILK THISTLE [Concomitant]
     Active Substance: DIETARY SUPPLEMENT\HERBALS\MILK THISTLE

REACTIONS (2)
  - Heart rate increased [None]
  - Hypertension [None]
